FAERS Safety Report 5489471-X (Version None)
Quarter: 2007Q4

REPORT INFORMATION
  Report Type: 
  Country: None (occurrence: None)
  Receive Date: 20071018
  Receipt Date: 20071015
  Transmission Date: 20080405
  Serious: Yes (Other)
  Sender: FDA-Public Use
  Company Number: A0688338A

PATIENT
  Age: 50 Year
  Sex: Female

DRUGS (1)
  1. NICORETTE [Suspect]
     Indication: SMOKING CESSATION THERAPY
     Dosage: 210GUM EVERY TWO WEEKS
     Route: 002
     Dates: start: 19900101

REACTIONS (2)
  - CEREBRAL INFARCTION [None]
  - INTENTIONAL DRUG MISUSE [None]
